FAERS Safety Report 4945824-7 (Version None)
Quarter: 2006Q1

REPORT INFORMATION
  Report Type: 
  Country: None (occurrence: None)
  Receive Date: 20060117
  Receipt Date: 20050908
  Transmission Date: 20060701
  Serious: Yes (Hospitalization)
  Sender: FDA-Public Use
  Company Number: A03200502844

PATIENT
  Age: 86 Year
  Sex: Female
  Weight: 56.23 kg

DRUGS (1)
  1. PLAVIX [Suspect]
     Indication: CARDIAC DISORDER
     Dosage: 75 MG QD -ORAL
     Route: 048
     Dates: start: 20050331, end: 20050820

REACTIONS (7)
  - ASTHENIA [None]
  - DEPRESSED MOOD [None]
  - EPISTAXIS [None]
  - FEELING ABNORMAL [None]
  - IMPAIRED HEALING [None]
  - MOUTH HAEMORRHAGE [None]
  - OEDEMA PERIPHERAL [None]
